FAERS Safety Report 8133911 (Version 17)
Quarter: 2014Q1

REPORT INFORMATION
  Report Type: Spontaneous
  Country: GB (occurrence: GB)
  Receive Date: 20110913
  Receipt Date: 20140320
  Transmission Date: 20141002
  Serious: Yes (Hospitalization, Other)
  Sender: FDA-Public Use
  Company Number: GB-PFIZER INC-2011209147

PATIENT
  Age: 34 Year
  Sex: Female
  Weight: 99.8 kg

DRUGS (13)
  1. LANSOPRAZOLE [Suspect]
     Indication: GASTROOESOPHAGEAL REFLUX PROPHYLAXIS
     Dosage: 30 MG, 1X/DAY
     Route: 048
     Dates: start: 20100907, end: 20100928
  2. NORETHISTERONE [Suspect]
     Indication: IMMUNE THROMBOCYTOPENIC PURPURA
     Dosage: ONCE ONLY
     Route: 048
     Dates: start: 20100922, end: 20100928
  3. TRANEXAMIC ACID [Suspect]
     Indication: IMMUNE THROMBOCYTOPENIC PURPURA
     Dosage: 1 DF, 4X/DAY
     Route: 048
     Dates: start: 20100922, end: 20100928
  4. NORETHINDRONE [Suspect]
     Dosage: 5 MG, 3X/DAY
     Route: 048
     Dates: start: 20100922, end: 20100928
  5. IMMUNOGLOBULINS [Suspect]
     Indication: HAEMATOLOGY TEST ABNORMAL
     Dosage: 1000 MG/KG, 1X/DAY
     Route: 042
     Dates: start: 20100922, end: 20100923
  6. IMMUNOGLOBULINS [Suspect]
     Indication: IMMUNE THROMBOCYTOPENIC PURPURA
  7. RITUXIMAB [Suspect]
     Indication: HAEMATOLOGY TEST ABNORMAL
     Dosage: 375 MG/M2, 2X/WEEK
     Route: 041
     Dates: start: 20100917, end: 20100924
  8. RITUXIMAB [Suspect]
     Indication: IMMUNE THROMBOCYTOPENIC PURPURA
  9. NPLATE [Suspect]
     Indication: IMMUNE THROMBOCYTOPENIC PURPURA
     Dosage: 1 MG/KG, UNK
     Route: 058
     Dates: start: 20100920, end: 20100920
  10. DEXAMETHASONE [Suspect]
     Indication: ANTIEMETIC SUPPORTIVE CARE
     Dosage: UNK
     Route: 048
     Dates: start: 20100907, end: 20131010
  11. DEXAMETHASONE [Suspect]
     Dosage: UNK
     Dates: start: 20100907, end: 20101010
  12. ANTI-D IMMUNOGLOBULIN [Concomitant]
  13. VINCRISTINE [Concomitant]

REACTIONS (9)
  - Rectal haemorrhage [Unknown]
  - Vaginal haemorrhage [Unknown]
  - Melaena [Unknown]
  - Haemoglobin decreased [Unknown]
  - Purpura [Recovered/Resolved]
  - Rash erythematous [Recovered/Resolved]
  - Haemorrhage [Unknown]
  - Rash maculo-papular [Recovered/Resolved]
  - Arthralgia [Unknown]
